FAERS Safety Report 21604211 (Version 2)
Quarter: 2022Q4

REPORT INFORMATION
  Report Type: Spontaneous
  Country: CN (occurrence: CN)
  Receive Date: 20221116
  Receipt Date: 20221121
  Transmission Date: 20230113
  Serious: Yes (Other)
  Sender: FDA-Public Use
  Company Number: CN-MLMSERVICE-20221103-3897994-1

PATIENT
  Age: 53 Year
  Sex: Female

DRUGS (6)
  1. PACLITAXEL [Suspect]
     Active Substance: PACLITAXEL
     Indication: Bladder squamous cell carcinoma stage unspecified
     Dosage: 175 MG/M2 (FOUR CYCLES)
  2. PACLITAXEL [Suspect]
     Active Substance: PACLITAXEL
     Indication: Urethral cancer metastatic
  3. CARBOPLATIN [Suspect]
     Active Substance: CARBOPLATIN
     Indication: Bladder squamous cell carcinoma stage unspecified
     Dosage: 400 MG, CYCLIC (FOUR CYCLES)
  4. CARBOPLATIN [Suspect]
     Active Substance: CARBOPLATIN
     Indication: Urethral cancer metastatic
  5. TORIPALIMAB [Suspect]
     Active Substance: TORIPALIMAB
     Indication: Bladder squamous cell carcinoma stage unspecified
     Dosage: EVERY 3 WEEKS (FOUR CYCLES)
  6. TORIPALIMAB [Suspect]
     Active Substance: TORIPALIMAB
     Indication: Urethral cancer metastatic

REACTIONS (1)
  - Liver injury [Recovering/Resolving]
